FAERS Safety Report 19057171 (Version 8)
Quarter: 2022Q1

REPORT INFORMATION
  Report Type: Report from Study
  Country: US (occurrence: US)
  Receive Date: 20210324
  Receipt Date: 20220104
  Transmission Date: 20220424
  Serious: Yes (Other)
  Sender: FDA-Public Use
  Company Number: NVSC2021US063202

PATIENT
  Age: 49 Year
  Sex: Male

DRUGS (2)
  1. ENTRESTO [Suspect]
     Active Substance: SACUBITRIL\VALSARTAN
     Indication: Product used for unknown indication
     Dosage: UNK
     Route: 065
  2. CARVEDILOL [Suspect]
     Active Substance: CARVEDILOL
     Indication: Cardiac failure
     Dosage: UNK
     Route: 065

REACTIONS (5)
  - Mitral valve incompetence [Unknown]
  - Dyspnoea [Unknown]
  - Malaise [Unknown]
  - Gynaecomastia [Unknown]
  - Asymptomatic COVID-19 [Unknown]

NARRATIVE: CASE EVENT DATE: 20201101
